FAERS Safety Report 13777663 (Version 1)
Quarter: 2017Q3

REPORT INFORMATION
  Report Type: Spontaneous
  Country: US (occurrence: US)
  Receive Date: 20170721
  Receipt Date: 20170721
  Transmission Date: 20171127
  Serious: No
  Sender: FDA-Public Use
  Company Number: US-CIPLA LTD.-2017US07213

PATIENT

DRUGS (13)
  1. WARFARIN [Suspect]
     Active Substance: WARFARIN
     Dosage: 6 MG, ON SUNDAY, TUESDAY, THURSDAY AND SATURDAY
     Route: 048
  2. LANTUS SOLOSTAR [Concomitant]
     Active Substance: INSULIN GLARGINE
     Dosage: 20 UNITS, DAILY
     Route: 058
  3. PROAIR HFA [Concomitant]
     Active Substance: ALBUTEROL SULFATE
     Dosage: 90 MCG, 2 PUFFS, EVERY 4 HOURS PRN
     Route: 065
  4. CLONIDINE. [Concomitant]
     Active Substance: CLONIDINE
     Dosage: 0.3 MG, TID
     Route: 048
  5. METOPROLOL TARTARATE [Concomitant]
     Active Substance: METOPROLOL TARTRATE
     Dosage: 100 MG, BID
     Route: 048
  6. PANTOPRAZOLE [Concomitant]
     Active Substance: PANTOPRAZOLE
     Dosage: 40 MG, QD, DELAYED RELEASE
     Route: 048
  7. SIMVASTATIN. [Concomitant]
     Active Substance: SIMVASTATIN
     Dosage: 20 MG, AT BED TIME
     Route: 048
  8. CHLORTHALIDONE. [Concomitant]
     Active Substance: CHLORTHALIDONE
     Dosage: 50 MG, QD
     Route: 048
  9. WARFARIN [Suspect]
     Active Substance: WARFARIN
     Indication: ATRIAL FIBRILLATION
     Dosage: 4 MG, ON MONDAY, WEDNESDAY AND FRIDAY (36MG/WEEK)
     Route: 048
  10. AMLODIPINE [Concomitant]
     Active Substance: AMLODIPINE BESYLATE
     Dosage: 5 MG, BID
     Route: 048
  11. DIGOXIN. [Concomitant]
     Active Substance: DIGOXIN
     Dosage: 0.25 MG, QD
     Route: 048
  12. GLIMIPRIDE [Concomitant]
     Active Substance: GLIMEPIRIDE
     Dosage: 4 MG, QD
     Route: 048
  13. LISINOPRIL. [Concomitant]
     Active Substance: LISINOPRIL
     Dosage: 10 MG, BID
     Route: 048

REACTIONS (3)
  - Drug ineffective [Unknown]
  - Product substitution issue [Unknown]
  - Anticoagulation drug level above therapeutic [Recovered/Resolved]

NARRATIVE: CASE EVENT DATE: 20170112
